FAERS Safety Report 18276302 (Version 1)
Quarter: 2020Q3

REPORT INFORMATION
  Report Type: Other
  Country: CA (occurrence: CA)
  Receive Date: 20200917
  Receipt Date: 20200917
  Transmission Date: 20201103
  Serious: Yes (Other)
  Sender: FDA-Public Use
  Company Number: CA-APOTEX-2020AP017776

PATIENT
  Sex: Female

DRUGS (24)
  1. FENTANYL CITRATE. [Suspect]
     Active Substance: FENTANYL CITRATE
     Indication: SUBSTANCE ABUSE
  2. MARIJUANA [Suspect]
     Active Substance: CANNABIS SATIVA SUBSP. INDICA TOP
     Indication: SUBSTANCE DEPENDENCE
     Dosage: UNK
     Route: 065
  3. CODEINE [Suspect]
     Active Substance: CODEINE
     Indication: SUBSTANCE DEPENDENCE
     Dosage: UNK
     Route: 065
  4. ALCOHOL. [Suspect]
     Active Substance: ALCOHOL
     Indication: SUBSTANCE DEPENDENCE
  5. DILAUDID [Suspect]
     Active Substance: HYDROMORPHONE HYDROCHLORIDE
     Indication: SUBSTANCE ABUSE
  6. FENTANYL CITRATE. [Suspect]
     Active Substance: FENTANYL CITRATE
     Indication: SUBSTANCE DEPENDENCE
     Dosage: UNK
     Route: 065
  7. NICOTINE. [Suspect]
     Active Substance: NICOTINE
     Indication: SUBSTANCE ABUSE
  8. ATIVAN [Suspect]
     Active Substance: LORAZEPAM
     Indication: SUBSTANCE ABUSE
  9. COCAINE [Suspect]
     Active Substance: COCAINE
     Indication: SUBSTANCE ABUSE
  10. ALCOHOL. [Suspect]
     Active Substance: ALCOHOL
     Indication: SUBSTANCE ABUSE
     Dosage: UNK
     Route: 065
  11. METHYLENEDIOXYMETHAMPHETAMINE [Suspect]
     Active Substance: MIDOMAFETAMINE
     Indication: SUBSTANCE ABUSE
  12. MARIJUANA [Suspect]
     Active Substance: CANNABIS SATIVA SUBSP. INDICA TOP
     Indication: SUBSTANCE ABUSE
  13. NICOTINE. [Suspect]
     Active Substance: NICOTINE
     Indication: SUBSTANCE DEPENDENCE
     Dosage: UNK
     Route: 065
  14. ATIVAN [Suspect]
     Active Substance: LORAZEPAM
     Indication: SUBSTANCE DEPENDENCE
     Dosage: UNK
     Route: 065
  15. CANNABIS SATIVA [Suspect]
     Active Substance: CANNABIS SATIVA FLOWERING TOP
     Indication: SUBSTANCE DEPENDENCE
     Dosage: UNK
     Route: 065
  16. METHYLENEDIOXYMETHAMPHETAMINE [Suspect]
     Active Substance: MIDOMAFETAMINE
     Indication: SUBSTANCE DEPENDENCE
     Dosage: UNK
     Route: 065
  17. DILAUDID [Suspect]
     Active Substance: HYDROMORPHONE HYDROCHLORIDE
     Indication: SUBSTANCE DEPENDENCE
     Dosage: UNK
     Route: 065
  18. CANNABIS SATIVA [Suspect]
     Active Substance: CANNABIS SATIVA FLOWERING TOP
     Indication: SUBSTANCE ABUSE
  19. GRAVOL [Suspect]
     Active Substance: DIMENHYDRINATE
     Indication: SUBSTANCE DEPENDENCE
     Dosage: UNK
     Route: 065
  20. GRAVOL [Suspect]
     Active Substance: DIMENHYDRINATE
     Indication: SUBSTANCE ABUSE
  21. COCAINE [Suspect]
     Active Substance: COCAINE
     Indication: SUBSTANCE DEPENDENCE
     Dosage: UNK
     Route: 065
  22. CODEINE [Suspect]
     Active Substance: CODEINE
     Indication: SUBSTANCE ABUSE
  23. DEMEROL [Suspect]
     Active Substance: MEPERIDINE HYDROCHLORIDE
     Indication: SUBSTANCE DEPENDENCE
     Dosage: UNK
     Route: 065
  24. DEMEROL [Suspect]
     Active Substance: MEPERIDINE HYDROCHLORIDE
     Indication: SUBSTANCE ABUSE

REACTIONS (2)
  - Substance dependence [Unknown]
  - Substance abuse [Unknown]
